FAERS Safety Report 10885632 (Version 1)
Quarter: 2015Q1

REPORT INFORMATION
  Report Type: Spontaneous
  Country: US (occurrence: None)
  Receive Date: 20150227
  Receipt Date: 20150227
  Transmission Date: 20150721
  Serious: Yes (Other)
  Sender: FDA-Public Use
  Company Number: FK201500852

PATIENT

DRUGS (1)
  1. CYANOCOBALAMIN INJECTION, USP (CYANOCOBALAMIN) (CYANOCOBALAMIN) [Suspect]
     Active Substance: CYANOCOBALAMIN
     Indication: PRODUCT USED FOR UNKNOWN INDICATION

REACTIONS (1)
  - Vomiting [None]
